FAERS Safety Report 6430468-0 (Version None)
Quarter: 2009Q4

REPORT INFORMATION
  Report Type: 
  Country: None (occurrence: None)
  Receive Date: 20091106
  Receipt Date: 20091104
  Transmission Date: 20100525
  Serious: Yes (Other)
  Sender: FDA-Public Use
  Company Number: US-ELI_LILLY_AND_COMPANY-US200911001297

PATIENT
  Age: 57 Year
  Sex: Male

DRUGS (10)
  1. BYETTA [Suspect]
     Dosage: 10 UG, 2/D
     Route: 058
     Dates: end: 20091012
  2. LANTUS [Concomitant]
     Dosage: UNK, UNKNOWN
     Route: 065
  3. GLYBURIDE [Concomitant]
     Dosage: UNK, UNKNOWN
     Route: 065
  4. METFORMIN [Concomitant]
     Dosage: UNK, UNKNOWN
     Route: 065
  5. ACTOS [Concomitant]
     Dosage: UNK, UNKNOWN
     Route: 065
  6. LOTREL [Concomitant]
     Dosage: UNK, UNKNOWN
     Route: 065
  7. PLAVIX [Concomitant]
     Dosage: UNK, UNKNOWN
     Route: 065
  8. METOPROLOL [Concomitant]
     Dosage: UNK, UNKNOWN
     Route: 065
  9. CRESTOR [Concomitant]
     Dosage: UNK, UNKNOWN
     Route: 065
  10. HYDROCHLORTHIAZID [Concomitant]
     Dosage: UNK, UNKNOWN
     Route: 065

REACTIONS (2)
  - OFF LABEL USE [None]
  - PANCREATITIS [None]
